FAERS Safety Report 17527845 (Version 2)
Quarter: 2020Q2

REPORT INFORMATION
  Report Type: Spontaneous
  Country: CZ (occurrence: CZ)
  Receive Date: 20200311
  Receipt Date: 20200407
  Transmission Date: 20200713
  Serious: Yes (Life-Threatening)
  Sender: FDA-Public Use
  Company Number: CZ-ACELRX PHARMACEUTICALS, INC-ACEL20200020

PATIENT
  Age: 32 Year
  Sex: Male

DRUGS (4)
  1. ATRACURIUM [Suspect]
     Active Substance: ATRACURIUM
     Indication: GENERAL ANAESTHESIA
     Dosage: UNKNOWN
     Route: 065
  2. SUXAMETHONIUM [Suspect]
     Active Substance: SUCCINYLCHOLINE
     Indication: GENERAL ANAESTHESIA
     Dosage: UNKNOWN
     Route: 065
  3. PROPOFOL. [Suspect]
     Active Substance: PROPOFOL
     Indication: GENERAL ANAESTHESIA
     Dosage: UNKNOWN
     Route: 065
  4. SUFENTANIL [Suspect]
     Active Substance: SUFENTANIL
     Indication: GENERAL ANAESTHESIA
     Dosage: UNKNOWN
     Route: 065

REACTIONS (1)
  - Negative pressure pulmonary oedema [Recovered/Resolved]
